FAERS Safety Report 6446548-X (Version None)
Quarter: 2009Q4

REPORT INFORMATION
  Report Type: 
  Country: None (occurrence: None)
  Receive Date: 20091116
  Receipt Date: 20091102
  Transmission Date: 20100525
  Serious: Yes (Hospitalization)
  Sender: FDA-Public Use
  Company Number: US024742

PATIENT
  Sex: Male

DRUGS (5)
  1. PROVIGIL [Suspect]
     Dosage: 200 MG (200 MG, 1 IN 1 D), ORAL
     Route: 048
  2. KLONOPIN [Concomitant]
  3. TRILEPTAL [Concomitant]
  4. DILANTIN [Concomitant]
  5. AVAPRO [Concomitant]

REACTIONS (6)
  - CONFUSIONAL STATE [None]
  - CONVULSION [None]
  - DECREASED APPETITE [None]
  - DRUG DISPENSING ERROR [None]
  - FATIGUE [None]
  - IRRITABILITY [None]
